FAERS Safety Report 9966025 (Version 1)
Quarter: 2014Q1

REPORT INFORMATION
  Report Type: Report from Study
  Country: US (occurrence: US)
  Receive Date: 20140305
  Receipt Date: 20140305
  Transmission Date: 20141002
  Serious: No
  Sender: FDA-Public Use
  Company Number: US-ABBVIE-13P-163-1127369-00

PATIENT
  Age: 50 Year
  Sex: Female
  Weight: 135.29 kg

DRUGS (17)
  1. HUMIRA [Suspect]
     Indication: RHEUMATOID ARTHRITIS
     Dates: start: 2012, end: 201301
  2. HUMIRA [Suspect]
     Dates: start: 201301, end: 201305
  3. HUMIRA [Suspect]
  4. METHOTREXATE [Concomitant]
     Indication: RHEUMATOID ARTHRITIS
     Dates: end: 201305
  5. METHOTREXATE [Concomitant]
  6. ABILIFY [Concomitant]
     Indication: BIPOLAR I DISORDER
  7. ABILIFY [Concomitant]
     Indication: HALLUCINATION, AUDITORY
  8. FOLIC ACID [Concomitant]
     Indication: RHEUMATOID ARTHRITIS
  9. FOLIC ACID [Concomitant]
     Indication: VITAMIN SUPPLEMENTATION
  10. CLONAZEPAM [Concomitant]
     Indication: ANXIETY
  11. BENZTROPINE [Concomitant]
     Indication: POLYMEDICATION
  12. BENZTROPINE [Concomitant]
     Indication: ANXIETY
  13. NEXIUM [Concomitant]
     Indication: GASTROOESOPHAGEAL REFLUX DISEASE
  14. AMBIEN [Concomitant]
     Indication: INSOMNIA
  15. CLARINEX [Concomitant]
     Indication: HYPERSENSITIVITY
  16. ENALAPRIL [Concomitant]
     Indication: HYPERTENSION
  17. EFFEXOR [Concomitant]
     Indication: FIBROMYALGIA

REACTIONS (10)
  - Unevaluable event [Recovered/Resolved]
  - Dyspnoea [Recovered/Resolved]
  - Asthma [Recovered/Resolved]
  - Pyrexia [Recovered/Resolved]
  - Chills [Recovered/Resolved]
  - Arthralgia [Recovered/Resolved]
  - Joint swelling [Not Recovered/Not Resolved]
  - Arthritis [Recovered/Resolved]
  - Arthralgia [Recovered/Resolved]
  - Somnolence [Recovered/Resolved]
